FAERS Safety Report 8822969 (Version 2)
Quarter: 2015Q2

REPORT INFORMATION
  Report Type: Report from Study
  Country: US (occurrence: US)
  Receive Date: 20121003
  Receipt Date: 20150403
  Transmission Date: 20150821
  Serious: Yes (Death, Hospitalization)
  Sender: FDA-Public Use
  Company Number: US-ROCHE-1131333

PATIENT
  Age: 67 Year
  Sex: Male

DRUGS (21)
  1. BENADRYL [Concomitant]
     Active Substance: DIPHENHYDRAMINE HYDROCHLORIDE
  2. ALBUTEROL. [Concomitant]
     Active Substance: ALBUTEROL
     Dosage: AS NEEDED
     Route: 065
  3. GREPAFLOXACIN [Concomitant]
  4. ROCEPHIN [Concomitant]
     Active Substance: CEFTRIAXONE SODIUM
     Route: 042
  5. BIAXIN [Concomitant]
     Active Substance: CLARITHROMYCIN
  6. TROVAN [Concomitant]
     Active Substance: TROVAFLOXACIN MESYLATE
     Route: 065
  7. ENOXAPARIN [Concomitant]
     Active Substance: ENOXAPARIN
  8. ADRIA [Concomitant]
     Route: 065
  9. GRANISETRON [Concomitant]
     Active Substance: GRANISETRON
     Route: 065
  10. RITUXAN [Suspect]
     Active Substance: RITUXIMAB
     Indication: CHRONIC LYMPHOCYTIC LEUKAEMIA
     Route: 042
     Dates: start: 19981117
  11. COUMADIN [Concomitant]
     Active Substance: WARFARIN SODIUM
     Route: 065
     Dates: start: 19980805
  12. PREDNISONE. [Concomitant]
     Active Substance: PREDNISONE
     Route: 065
  13. FERRITIN [Concomitant]
     Active Substance: FERRITIN
  14. SEPTRA [Concomitant]
     Active Substance: SULFAMETHOXAZOLE\TRIMETHOPRIM
  15. CHLORAMBUCIL [Concomitant]
     Active Substance: CHLORAMBUCIL
     Route: 065
     Dates: start: 199710
  16. COUMADIN [Concomitant]
     Active Substance: WARFARIN SODIUM
     Route: 065
  17. COUMADIN [Concomitant]
     Active Substance: WARFARIN SODIUM
     Route: 065
  18. CEFTAZIDIME. [Concomitant]
     Active Substance: CEFTAZIDIME
     Route: 065
  19. PNEUMOVAX 23 [Concomitant]
     Active Substance: PNEUMOCOCCAL VACCINE, POLYVALENT 23
  20. RITUXAN [Suspect]
     Active Substance: RITUXIMAB
     Dosage: MG/M
     Route: 042
  21. BECLOVENT [Concomitant]
     Active Substance: BECLOMETHASONE DIPROPIONATE

REACTIONS (16)
  - Lung infection [Unknown]
  - Chills [Unknown]
  - Pyrexia [Unknown]
  - Pneumonia pseudomonal [Unknown]
  - Lymphoma [Unknown]
  - Ageusia [Unknown]
  - Death [Fatal]
  - Tremor [Unknown]
  - Vertigo [Unknown]
  - Hypersplenism [Unknown]
  - Asthenia [Unknown]
  - Decreased appetite [Unknown]
  - Deep vein thrombosis [Unknown]
  - Splenomegaly [Unknown]
  - Dizziness [Unknown]
  - Weight decreased [Unknown]

NARRATIVE: CASE EVENT DATE: 19990228
